FAERS Safety Report 9199387 (Version 1)
Quarter: 2013Q1

REPORT INFORMATION
  Report Type: Spontaneous
  Country: US (occurrence: US)
  Receive Date: 20130329
  Receipt Date: 20130329
  Transmission Date: 20140127
  Serious: No
  Sender: FDA-Public Use
  Company Number: US-009507513-1303USA011481

PATIENT
  Sex: Male

DRUGS (4)
  1. LOTRIMIN AF LIQUID SPRAY [Suspect]
     Indication: TINEA PEDIS
     Dosage: UNK, UNKNOWN
     Route: 061
  2. LOTRIMIN AF LIQUID SPRAY [Suspect]
     Indication: TINEA CRURIS
  3. LOTRIMIN AF LIQUID SPRAY [Suspect]
     Indication: PRURITUS GENITAL
  4. LOTRIMIN AF LIQUID SPRAY [Suspect]
     Indication: MUSCULOSKELETAL DISCOMFORT

REACTIONS (9)
  - Sensory loss [Not Recovered/Not Resolved]
  - Skin exfoliation [Unknown]
  - Skin swelling [Unknown]
  - Scrotal pain [Not Recovered/Not Resolved]
  - Chemical injury [Unknown]
  - Genital burning sensation [Unknown]
  - Genital erythema [Unknown]
  - Genital discomfort [Unknown]
  - Skin discolouration [Not Recovered/Not Resolved]
